FAERS Safety Report 9196772 (Version 4)
Quarter: 2013Q2

REPORT INFORMATION
  Report Type: Spontaneous
  Country: US (occurrence: US)
  Receive Date: 20130328
  Receipt Date: 20130626
  Transmission Date: 20140414
  Serious: Yes (Hospitalization, Other)
  Sender: FDA-Public Use
  Company Number: US-B.I. PHARMACEUTICALS,INC./RIDGEFIELD-2013-BI-07997YA

PATIENT
  Age: 70 Year
  Sex: Male
  Weight: 88.43 kg

DRUGS (6)
  1. TAMSULOSIN CAPSULES [Suspect]
     Route: 048
  2. CELEBREX [Suspect]
     Indication: ARTHRITIS
     Dosage: 200 MG
     Route: 048
     Dates: start: 2012, end: 201303
  3. CELEBREX [Suspect]
     Indication: PAIN
  4. LIPITOR [Suspect]
     Indication: BLOOD CHOLESTEROL ABNORMAL
     Dosage: 40 MG
  5. LISINOPRIL [Suspect]
     Dosage: PER ORAL NOS
     Route: 048
  6. RAPAFLO [Suspect]
     Dosage: PER ORAL NOS
     Route: 048

REACTIONS (7)
  - Loss of consciousness [Recovered/Resolved]
  - Apparent death [Unknown]
  - Blood pressure decreased [Unknown]
  - Blindness [Unknown]
  - Pruritus [Recovered/Resolved]
  - Erythema [Recovered/Resolved]
  - Reaction to drug excipients [Recovered/Resolved]
